FAERS Safety Report 24070735 (Version 1)
Quarter: 2024Q3

REPORT INFORMATION
  Report Type: Spontaneous
  Country: US (occurrence: None)
  Receive Date: 20240709
  Receipt Date: 20240709
  Transmission Date: 20241016
  Serious: No
  Sender: Public
  Company Number: None

PATIENT
  Age: 39 Year
  Sex: 0
  Weight: 67.5 kg

DRUGS (1)
  1. DEXAMETHASONE [Suspect]
     Active Substance: DEXAMETHASONE
     Route: 030

REACTIONS (2)
  - Generalised tonic-clonic seizure [None]
  - Loss of consciousness [None]

NARRATIVE: CASE EVENT DATE: 20240707
